FAERS Safety Report 5977595-X (Version None)
Quarter: 2008Q4

REPORT INFORMATION
  Report Type: 
  Country: None (occurrence: None)
  Receive Date: 20081124
  Receipt Date: 20081111
  Transmission Date: 20090506
  Serious: Yes (Death, Hospitalization)
  Sender: FDA-Public Use
  Company Number: 2008-04229

PATIENT
  Age: 46 Year
  Sex: Male
  Weight: 68.6 kg

DRUGS (3)
  1. VELCADE [Suspect]
     Indication: LUNG ADENOCARCINOMA STAGE IV
     Dosage: 1.6 MG/M2, IV BOLUS
     Route: 040
     Dates: start: 20081010, end: 20081031
  2. MORPHINE [Concomitant]
  3. ATIVAN [Concomitant]

REACTIONS (8)
  - ABDOMINAL DISTENSION [None]
  - BACK PAIN [None]
  - BONE PAIN [None]
  - DEHYDRATION [None]
  - DYSPNOEA [None]
  - MALIGNANT NEOPLASM PROGRESSION [None]
  - MUSCULOSKELETAL CHEST PAIN [None]
  - PAIN IN EXTREMITY [None]
